FAERS Safety Report 11144990 (Version 1)
Quarter: 2015Q2

REPORT INFORMATION
  Report Type: Spontaneous
  Country: US (occurrence: None)
  Receive Date: 20150526
  Receipt Date: 20150526
  Transmission Date: 20150821
  Serious: Yes (Other)
  Sender: FDA-Public Use
  Company Number: ADR-2015-01012

PATIENT
  Age: 27 Year
  Sex: Female

DRUGS (1)
  1. BACLOFEN INTRATHECAL [Suspect]
     Active Substance: BACLOFEN
     Indication: MUSCLE SPASTICITY

REACTIONS (12)
  - Nephrolithiasis [None]
  - Miosis [None]
  - Pupillary light reflex tests abnormal [None]
  - Device deployment issue [None]
  - Lethargy [None]
  - Ascites [None]
  - Device connection issue [None]
  - Somnolence [None]
  - Post procedural complication [None]
  - Overdose [None]
  - Sepsis [None]
  - Hypotonia [None]
